FAERS Safety Report 5995681-5 (Version None)
Quarter: 2008Q4

REPORT INFORMATION
  Report Type: 
  Country: None (occurrence: None)
  Receive Date: 20081209
  Receipt Date: 20081127
  Transmission Date: 20090506
  Serious: Yes (Other)
  Sender: FDA-Public Use
  Company Number: CHPA2008US21289

PATIENT
  Age: 66 Year
  Sex: Female
  Weight: 48.1 kg

DRUGS (1)
  1. EX-LAX REG STR LAX PILLS SENNA (NCH) (SENNA GLYCOSIDES (CA SALTS OF PU [Suspect]
     Indication: CONSTIPATION
     Dosage: 30 MG, ONCE/ SINGLE, ORAL
     Route: 048
     Dates: start: 20081126, end: 20081126

REACTIONS (2)
  - PRURITUS GENERALISED [None]
  - RASH GENERALISED [None]
